FAERS Safety Report 4351045-1 (Version None)
Quarter: 2004Q2

REPORT INFORMATION
  Report Type: 
  Country: None (occurrence: None)
  Receive Date: 20040427
  Receipt Date: 20040416
  Transmission Date: 20050107
  Serious: Yes (Hospitalization)
  Sender: FDA-Public Use
  Company Number: 2004UW08005

PATIENT
  Age: 64 Year
  Sex: Male

DRUGS (1)
  1. IRESSA [Suspect]

REACTIONS (2)
  - HEART RATE INCREASED [None]
  - MYOCARDIAL INFARCTION [None]
